FAERS Safety Report 9136933 (Version 1)
Quarter: 2013Q1

REPORT INFORMATION
  Report Type: Spontaneous
  Country: US (occurrence: US)
  Receive Date: 20130304
  Receipt Date: 20130304
  Transmission Date: 20140127
  Serious: No
  Sender: FDA-Public Use
  Company Number: US-ABBOTT-12P-163-1023590-00

PATIENT
  Age: 59 None
  Sex: Male
  Weight: 93.07 kg

DRUGS (5)
  1. ANDROGEL [Suspect]
     Indication: BLOOD TESTOSTERONE DECREASED
     Dosage: 1 PACKET
     Route: 061
     Dates: start: 20121105
  2. MVI [Concomitant]
     Indication: VITAMIN SUPPLEMENTATION
  3. NIACIN [Concomitant]
     Indication: VITAMIN SUPPLEMENTATION
  4. RED YEAST RICE [Concomitant]
     Indication: MEDICAL DIET
  5. CO Q 10 [Concomitant]
     Indication: VITAMIN SUPPLEMENTATION

REACTIONS (8)
  - Tearfulness [Not Recovered/Not Resolved]
  - Affect lability [Not Recovered/Not Resolved]
  - Product quality issue [Not Recovered/Not Resolved]
  - Blood testosterone decreased [Unknown]
  - Blood cholesterol increased [Unknown]
  - Blood pressure increased [Unknown]
  - Weight increased [Unknown]
  - Therapeutic response unexpected [Unknown]
